FAERS Safety Report 6347672-2 (Version None)
Quarter: 2009Q3

REPORT INFORMATION
  Report Type: 
  Country: None (occurrence: None)
  Receive Date: 20090910
  Receipt Date: 20090901
  Transmission Date: 20100115
  Serious: No
  Sender: FDA-Public Use
  Company Number: US-B.I. PHARMACEUTICALS,INC./RIDGEFIELD-2009-BP-08140BP

PATIENT
  Sex: Male

DRUGS (6)
  1. FLOMAX [Suspect]
     Indication: DYSURIA
     Dosage: 0.8 MG
     Route: 048
     Dates: start: 20060101
  2. FLOMAX [Suspect]
     Indication: BENIGN PROSTATIC HYPERPLASIA
  3. AVODART [Concomitant]
     Indication: PROSTATIC DISORDER
  4. ZOCOR [Concomitant]
     Indication: BLOOD CHOLESTEROL INCREASED
  5. SIMVASTATIN [Concomitant]
     Indication: HYPERTENSION
  6. ASPIRIN [Concomitant]
     Indication: ROUTINE HEALTH MAINTENANCE

REACTIONS (5)
  - ABDOMINAL PAIN [None]
  - DYSURIA [None]
  - NOCTURIA [None]
  - PARAESTHESIA [None]
  - PROSTATIC DISORDER [None]
